FAERS Safety Report 13503430 (Version 2)
Quarter: 2017Q2

REPORT INFORMATION
  Report Type: Spontaneous
  Country: CH (occurrence: CH)
  Receive Date: 20170502
  Receipt Date: 20170508
  Transmission Date: 20170830
  Serious: Yes (Hospitalization, Other)
  Sender: FDA-Public Use
  Company Number: CH-PFIZER INC-2017182685

PATIENT
  Age: 73 Year
  Sex: Female

DRUGS (32)
  1. LITALIR [Concomitant]
     Active Substance: HYDROXYUREA
     Dosage: 500MG 2-0-0, RESPECTIVELY 1-0-0 EVERY 2D, CURRENTLY PAUSED
     Dates: end: 20170411
  2. TRESIBA [Concomitant]
     Active Substance: INSULIN DEGLUDEC
     Dosage: 8 IU (8-0-0-0), CURRENTLY PAUSED, INSTEAD HUMALOG
     Dates: end: 20170411
  3. ZINK VERLA [Concomitant]
     Active Substance: ZINC GLUCONATE
     Dosage: UNK
     Dates: start: 20170416
  4. PALLADONE [Concomitant]
     Active Substance: HYDROMORPHONE HYDROCHLORIDE
     Dosage: 1DF (1 AMPOULE)
  5. FRAGMIN [Concomitant]
     Active Substance: DALTEPARIN SODIUM
     Dosage: CURRENTLY AT REDUCED DOSE
  6. VALVERDE /01561605/ [Concomitant]
     Dosage: 0-20ML-0-0, CURRENTLY PAUSED
  7. TAZOBAC [Suspect]
     Active Substance: PIPERACILLIN SODIUM\TAZOBACTAM SODIUM
     Dosage: 4.5 G, 3X/DAY (EVERY 8 HOURS)
     Route: 041
     Dates: start: 20170407, end: 20170409
  8. TAZOBAC [Interacting]
     Active Substance: PIPERACILLIN SODIUM\TAZOBACTAM SODIUM
     Dosage: 4.5 G, 2X/DAY (EVERY 12 HOURS)
     Dates: start: 20170410
  9. ESOMEP /01479301/ [Concomitant]
     Active Substance: ESOMEPRAZOLE
     Dosage: 20MG 1X/DAY (1-0-0), PAUSED TILL 16APR2017
     Dates: end: 20170411
  10. LASIX [Concomitant]
     Active Substance: FUROSEMIDE
     Dosage: UNK, AS NEEDED
     Dates: start: 20170418
  11. PASPERTIN /00041902/ [Concomitant]
     Active Substance: METOCLOPRAMIDE HYDROCHLORIDE
     Dosage: 1 DF, AS NEEDED
  12. ZINK VERLA [Concomitant]
     Active Substance: ZINC GLUCONATE
     Dosage: 20MG 2X/DAY (1-0-0), PAUSED TILL 16APR2017
     Dates: end: 20170411
  13. ESOMEP /01479301/ [Concomitant]
     Active Substance: ESOMEPRAZOLE
     Dosage: UNK
     Dates: start: 20170416
  14. KALIUM HAUSMANN EFFERVETTES [Concomitant]
     Dosage: 1DF 2X/DAY (1-0-1), CURRENTLY PAUSED
     Dates: end: 20170411
  15. PERFALGAN [Concomitant]
     Active Substance: ACETAMINOPHEN
     Dosage: 1 DF, AS NEEDED
  16. CLEXANE [Concomitant]
     Active Substance: ENOXAPARIN SODIUM
     Dosage: CURRENTLY AT REDUCED DOSE
  17. TOREM /01036501/ [Concomitant]
     Active Substance: TORSEMIDE
     Dosage: 10MG 1X/DAY (1-0-0), CURRENTLY PAUSED
     Dates: end: 20170411
  18. ACIDUM FOLICUM [Concomitant]
     Active Substance: FOLIC ACID
     Dosage: 5MG 1X/DAY (1-0-0), PAUSED TILL 16APR2017
     Dates: end: 20170411
  19. VITAMIN D [Concomitant]
     Active Substance: CHOLECALCIFEROL
     Dosage: 4000 IU EVERY 29 DAYS
  20. VANCOMYCIN [Interacting]
     Active Substance: VANCOMYCIN
     Dosage: 500 MG, 2X/DAY (EVERY 12 HOURS)
     Dates: start: 20170409, end: 20170410
  21. VANCOMYCIN [Interacting]
     Active Substance: VANCOMYCIN
     Dosage: 1G, 2X/DAY (EVERY 12 HOURS)
     Route: 041
     Dates: start: 20170407, end: 20170408
  22. ASS CARDIO [Concomitant]
     Active Substance: ASPIRIN
     Dosage: 100MG, 1-0-0, CURRENTLY PAUSED
     Dates: end: 20170411
  23. CLEXANE [Concomitant]
     Active Substance: ENOXAPARIN SODIUM
     Dosage: 20MG, 0-0-1, CURRENTLY PAUSED, INSTEAD FRAGMIN AT REDUCED DOSE
     Dates: end: 20170411
  24. ATORVASTATIN [Concomitant]
     Active Substance: ATORVASTATIN
     Dosage: UNK
     Dates: start: 20170415
  25. ONDANSETRON [Concomitant]
     Active Substance: ONDANSETRON
     Dosage: 4MG 2X/DAY (1-0-1), CURRENTLY PAUSED
     Dates: end: 20170411
  26. CUBICIN [Concomitant]
     Active Substance: DAPTOMYCIN
     Dosage: 500 MG, ALTERNATE DAY (EVERY 48 HOURS)
  27. HUMALOG [Concomitant]
     Active Substance: INSULIN LISPRO
     Dosage: UNK
  28. ATORVASTATIN [Concomitant]
     Active Substance: ATORVASTATIN
     Dosage: 20 MG, 1X/DAY (0-0-1), PAUSED TILL 15APR2017
     Dates: end: 20170411
  29. BRINTELLIX [Concomitant]
     Active Substance: VORTIOXETINE HYDROBROMIDE
     Dosage: 10MG (1-0-0), CURRENTLY PAUSED
     Dates: end: 20170411
  30. LASIX [Concomitant]
     Active Substance: FUROSEMIDE
     Dosage: 20MG 3X/DAY (1-1-0-1), CURRENTLY AS NEEDED
     Dates: end: 20170411
  31. METFORMIN [Concomitant]
     Active Substance: METFORMIN HYDROCHLORIDE
     Dosage: 500MG 2X/DAY (1-0-1), CURRENTLY PAUSED
     Dates: end: 20170411
  32. ACIDUM FOLICUM [Concomitant]
     Active Substance: FOLIC ACID
     Dosage: UNK
     Dates: start: 20170416

REACTIONS (2)
  - Drug interaction [Not Recovered/Not Resolved]
  - Acute kidney injury [Not Recovered/Not Resolved]

NARRATIVE: CASE EVENT DATE: 20170407
